FAERS Safety Report 4554557-0 (Version None)
Quarter: 2005Q1

REPORT INFORMATION
  Report Type: 
  Country: None (occurrence: None)
  Receive Date: 20050118
  Receipt Date: 20050107
  Transmission Date: 20050727
  Serious: Yes (Hospitalization)
  Sender: FDA-Public Use
  Company Number: US-ABBOTT-05P-163-0285734-00

PATIENT
  Sex: Male
  Weight: 86.26 kg

DRUGS (2)
  1. DEPAKOTE [Suspect]
     Indication: BIPOLAR DISORDER
     Route: 048
     Dates: start: 20041201, end: 20041224
  2. BUPROPION HYDROCHLORIDE [Concomitant]
     Indication: BIPOLAR DISORDER
     Route: 048
     Dates: start: 20041201

REACTIONS (4)
  - APLASTIC ANAEMIA [None]
  - EPISTAXIS [None]
  - HAEMATOTOXICITY [None]
  - PYREXIA [None]
